FAERS Safety Report 18325427 (Version 1)
Quarter: 2020Q3

REPORT INFORMATION
  Report Type: Spontaneous
  Country: US (occurrence: US)
  Receive Date: 20200929
  Receipt Date: 20200929
  Transmission Date: 20201103
  Serious: Yes (Hospitalization, Other)
  Sender: FDA-Public Use
  Company Number: US-PURDUE-USA-2020-0164184

PATIENT
  Age: 43 Year
  Sex: Male

DRUGS (1)
  1. OXYCONTIN [Suspect]
     Active Substance: OXYCODONE HYDROCHLORIDE
     Indication: PRODUCT USED FOR UNKNOWN INDICATION
     Dosage: 60 MG, DAILY
     Route: 048

REACTIONS (21)
  - Acute stress disorder [Unknown]
  - Depression [Unknown]
  - Decreased appetite [Unknown]
  - Disturbance in attention [Unknown]
  - Unevaluable event [Unknown]
  - Suicidal ideation [Unknown]
  - Drug dependence [Unknown]
  - Vomiting [Unknown]
  - Nausea [Unknown]
  - Arthralgia [Unknown]
  - Anger [Unknown]
  - Confusional state [Unknown]
  - Feeling guilty [Unknown]
  - Irritability [Unknown]
  - Self esteem decreased [Unknown]
  - Insomnia [Unknown]
  - Libido decreased [Unknown]
  - Memory impairment [Unknown]
  - Amnesia [Unknown]
  - Constipation [Unknown]
  - Agitation [Unknown]

NARRATIVE: CASE EVENT DATE: 20171215
